FAERS Safety Report 5527741-7 (Version None)
Quarter: 2007Q4

REPORT INFORMATION
  Report Type: 
  Country: None (occurrence: None)
  Receive Date: 20071128
  Receipt Date: 20071119
  Transmission Date: 20080405
  Serious: Yes (Other)
  Sender: FDA-Public Use
  Company Number: US-ELI_LILLY_AND_COMPANY-US200708004770

PATIENT
  Sex: Male

DRUGS (9)
  1. BYETTA [Suspect]
     Dosage: 10 UG, 2/D
     Route: 058
     Dates: start: 20070801
  2. ZOCOR [Concomitant]
     Indication: BLOOD CHOLESTEROL
     Dosage: UNK, UNKNOWN
  3. CARDIZEM [Concomitant]
     Indication: MIGRAINE
     Dosage: UNK, UNKNOWN
  4. LANTUS [Concomitant]
     Indication: DIABETES MELLITUS
     Dosage: UNK, UNKNOWN
  5. NOVOLOG [Concomitant]
     Indication: DIABETES MELLITUS
     Dosage: UNK, UNKNOWN
  6. ASPIRIN [Concomitant]
     Indication: CORONARY ARTERY DISEASE
     Dosage: UNK, UNKNOWN
  7. PLAVIX [Concomitant]
     Indication: CORONARY ARTERY DISEASE
     Dosage: UNK, UNKNOWN
  8. LISINOPRIL [Concomitant]
     Indication: CORONARY ARTERY DISEASE
     Dosage: UNK, UNKNOWN
  9. TOPROL-XL [Concomitant]
     Indication: CORONARY ARTERY DISEASE
     Dosage: UNK, UNKNOWN

REACTIONS (2)
  - HYPOAESTHESIA [None]
  - THROMBOTIC STROKE [None]
